FAERS Safety Report 11365202 (Version 15)
Quarter: 2019Q1

REPORT INFORMATION
  Report Type: Spontaneous
  Country: US (occurrence: US)
  Receive Date: 20150811
  Receipt Date: 20190328
  Transmission Date: 20190417
  Serious: Yes (Hospitalization)
  Sender: FDA-Public Use
  Company Number: US-ACTELION-A-US2015-120376

PATIENT
  Age: 79 Year
  Sex: Female
  Weight: 61.68 kg

DRUGS (6)
  1. TRACLEER [Suspect]
     Active Substance: BOSENTAN
     Dosage: UNK
     Route: 048
  2. TRACLEER [Suspect]
     Active Substance: BOSENTAN
     Indication: PULMONARY ARTERIAL HYPERTENSION
     Dosage: 125 MG, BID
     Route: 048
     Dates: start: 20090611
  3. AMLODIPINE [Concomitant]
     Active Substance: AMLODIPINE BESYLATE
  4. TRACLEER [Suspect]
     Active Substance: BOSENTAN
     Dosage: 125 MG, BID
     Route: 048
  5. ZITHROMAX [Concomitant]
     Active Substance: AZITHROMYCIN DIHYDRATE
  6. OXYGEN. [Concomitant]
     Active Substance: OXYGEN
     Dosage: UNK

REACTIONS (33)
  - Vomiting [Unknown]
  - Pneumonia [Unknown]
  - Chronic obstructive pulmonary disease [Not Recovered/Not Resolved]
  - Rash [Unknown]
  - Fungal infection [Unknown]
  - Loss of consciousness [Recovering/Resolving]
  - Drug hypersensitivity [Unknown]
  - Asthma [Recovering/Resolving]
  - Dizziness [Unknown]
  - Bronchitis [Unknown]
  - Fatigue [Unknown]
  - Asthenia [Unknown]
  - Fall [Unknown]
  - Dyspnoea [Not Recovered/Not Resolved]
  - Hypersensitivity [Not Recovered/Not Resolved]
  - Anaemia [Unknown]
  - Hypertension [Unknown]
  - Hypotension [Unknown]
  - Insomnia [Unknown]
  - Dry skin [Unknown]
  - Decreased appetite [Unknown]
  - Headache [Unknown]
  - Chills [Unknown]
  - Syncope [Unknown]
  - Rash pruritic [Unknown]
  - Pyrexia [Unknown]
  - Cough [Unknown]
  - Skin swelling [Unknown]
  - Nausea [Unknown]
  - Oxygen therapy [Unknown]
  - Rib fracture [Unknown]
  - Chest pain [Unknown]
  - Balance disorder [Unknown]

NARRATIVE: CASE EVENT DATE: 201611
